FAERS Safety Report 25081344 (Version 2)
Quarter: 2025Q1

REPORT INFORMATION
  Report Type: Spontaneous
  Country: FR (occurrence: FR)
  Receive Date: 20250316
  Receipt Date: 20250317
  Transmission Date: 20250409
  Serious: Yes (Other)
  Sender: DENTSPLY
  Company Number: FR-DENTSPLY-2025SCDP000057

PATIENT
  Age: 38 Year
  Sex: Male

DRUGS (1)
  1. EPINEPHRINE BITARTRATE\LIDOCAINE HYDROCHLORIDE [Suspect]
     Active Substance: EPINEPHRINE BITARTRATE\LIDOCAINE HYDROCHLORIDE
     Indication: Cryotherapy
     Route: 065
     Dates: start: 20250131

REACTIONS (4)
  - Deafness [None]
  - Off label use [Unknown]
  - Arthralgia [None]
  - Ear pain [None]

NARRATIVE: CASE EVENT DATE: 20250131
